FAERS Safety Report 6385224-9 (Version None)
Quarter: 2009Q4

REPORT INFORMATION
  Report Type: 
  Country: None (occurrence: None)
  Receive Date: 20091002
  Receipt Date: 20080829
  Transmission Date: 20100525
  Serious: No
  Sender: FDA-Public Use
  Company Number: US-ASTRAZENECA-2007UW12807

PATIENT
  Age: 77 Year
  Sex: Female
  Weight: 58.5 kg

DRUGS (3)
  1. ARIMIDEX [Suspect]
     Indication: BREAST CANCER FEMALE
     Route: 048
     Dates: start: 20070201
  2. PAMELOR [Concomitant]
  3. TOPROL-XL [Concomitant]

REACTIONS (3)
  - HOT FLUSH [None]
  - TACHYCARDIA [None]
  - WEIGHT INCREASED [None]
